FAERS Safety Report 9054155 (Version 1)
Quarter: 2013Q1

REPORT INFORMATION
  Report Type: Spontaneous
  Country: GB (occurrence: GB)
  Receive Date: 20130208
  Receipt Date: 20130208
  Transmission Date: 20140127
  Serious: Yes (Disabling, Other)
  Sender: FDA-Public Use
  Company Number: GB-B.I. PHARMACEUTICALS,INC./RIDGEFIELD-2013-UK-00165UK

PATIENT
  Age: 69 Year
  Sex: Male
  Weight: 97.52 kg

DRUGS (7)
  1. PRADAXA [Suspect]
     Indication: ILL-DEFINED DISORDER
     Dates: start: 20130104
  2. ATORVASTATIN [Concomitant]
     Dates: start: 20121022
  3. BISOPROLOL [Concomitant]
     Dates: start: 20121022
  4. LACRI-LUBE [Concomitant]
     Dates: start: 20110524
  5. LANSOPRAZOLE [Concomitant]
     Dates: start: 20121022
  6. RAMIPRIL [Concomitant]
     Dates: start: 20121022
  7. SNO TEARS [Concomitant]
     Dates: start: 20110524

REACTIONS (3)
  - Dyspnoea [Unknown]
  - Conversion disorder [Unknown]
  - Renal pain [Unknown]
